FAERS Safety Report 20652114 (Version 2)
Quarter: 2022Q2

REPORT INFORMATION
  Report Type: Spontaneous
  Country: AT (occurrence: AT)
  Receive Date: 20220330
  Receipt Date: 20220414
  Transmission Date: 20220720
  Serious: Yes (Hospitalization)
  Sender: FDA-Public Use
  Company Number: AT-NOVARTISPH-NVSC2022AT069425

PATIENT
  Sex: Male
  Weight: 4 kg

DRUGS (5)
  1. ZOLGENSMA [Suspect]
     Active Substance: ONASEMNOGENE ABEPARVOVEC-XIOI
     Indication: Product used for unknown indication
     Dosage: UNK UNK, ONCE/SINGLE
     Route: 042
     Dates: start: 20220223, end: 20220223
  2. CHOLECALCIFEROL [Concomitant]
     Active Substance: CHOLECALCIFEROL
     Indication: Product used for unknown indication
     Dosage: UNK
     Route: 065
     Dates: start: 20220214
  3. INFECTODEXAKRUPP [Concomitant]
     Indication: Product used for unknown indication
     Dosage: UNK (FORMULATION: LIQUID)
     Route: 065
     Dates: start: 20220222
  4. CORTICOSAN [Concomitant]
     Indication: General physical health deterioration
     Dosage: UNK
     Route: 065
  5. NEXIUM [Concomitant]
     Active Substance: ESOMEPRAZOLE MAGNESIUM
     Indication: Product used for unknown indication
     Dosage: UNK
     Route: 065
     Dates: start: 20220222

REACTIONS (2)
  - Blood pressure systolic increased [Unknown]
  - Hypertension [Unknown]

NARRATIVE: CASE EVENT DATE: 20220324
